FAERS Safety Report 12632264 (Version 2)
Quarter: 2016Q3

REPORT INFORMATION
  Report Type: Spontaneous
  Country: US (occurrence: US)
  Receive Date: 20160808
  Receipt Date: 20160808
  Transmission Date: 20161109
  Serious: No
  Sender: FDA-Public Use
  Company Number: US-BEH-2016062273

PATIENT
  Sex: Male
  Weight: 128 kg

DRUGS (21)
  1. HIZENTRA [Suspect]
     Active Substance: HUMAN IMMUNOGLOBULIN G
     Indication: IMMUNODEFICIENCY COMMON VARIABLE
     Dosage: EVERY OTHER WEEK
     Route: 058
  2. DIPHENHYDRAMINE. [Concomitant]
     Active Substance: DIPHENHYDRAMINE
  3. TAMIFLU [Concomitant]
     Active Substance: OSELTAMIVIR PHOSPHATE
  4. ASPIRIN. [Concomitant]
     Active Substance: ASPIRIN
  5. LITHIUM. [Concomitant]
     Active Substance: LITHIUM
  6. ATIVAN [Concomitant]
     Active Substance: LORAZEPAM
  7. PENICILLIN [Concomitant]
     Active Substance: PENICILLIN
  8. ACETAMINOPHEN. [Concomitant]
     Active Substance: ACETAMINOPHEN
  9. LIDOCAINE/PRILOCAINE [Concomitant]
     Active Substance: LIDOCAINE\PRILOCAINE
  10. L-M-X [Concomitant]
  11. NASOCORT [Concomitant]
     Active Substance: BUDESONIDE
  12. NIASPAN ER [Concomitant]
     Active Substance: NIACIN
  13. EPIPEN [Concomitant]
     Active Substance: EPINEPHRINE
  14. AMOXICILLIN. [Concomitant]
     Active Substance: AMOXICILLIN
  15. SYMBICORT [Concomitant]
     Active Substance: BUDESONIDE\FORMOTEROL FUMARATE DIHYDRATE
  16. CELEXA [Concomitant]
     Active Substance: CITALOPRAM HYDROBROMIDE
  17. TOPAMAX [Concomitant]
     Active Substance: TOPIRAMATE
  18. SINGULAIR [Concomitant]
     Active Substance: MONTELUKAST SODIUM
  19. LIPITOR [Concomitant]
     Active Substance: ATORVASTATIN CALCIUM
  20. ZYRTEC [Concomitant]
     Active Substance: CETIRIZINE HYDROCHLORIDE
  21. XOPENEX [Concomitant]
     Active Substance: LEVALBUTEROL HYDROCHLORIDE

REACTIONS (1)
  - Upper respiratory tract infection [Unknown]
